FAERS Safety Report 23835053 (Version 2)
Quarter: 2024Q3

REPORT INFORMATION
  Report Type: Spontaneous
  Country: CA (occurrence: CA)
  Receive Date: 20240509
  Receipt Date: 20240708
  Transmission Date: 20241017
  Serious: Yes (Hospitalization, Other)
  Sender: CELLTRION
  Company Number: CA-PFIZER INC-202400089012

PATIENT

DRUGS (2)
  1. INFLECTRA [Suspect]
     Active Substance: INFLIXIMAB-DYYB
     Indication: Colitis ulcerative
     Dosage: 10 MG/KG INDUCTION WEEKS 0 (RECEIVED IN HOSPITAL), 2, 6, THEN MAINTENANCE EVERY 8 WEEKS
     Route: 042
     Dates: start: 20240410
  2. INFLECTRA [Suspect]
     Active Substance: INFLIXIMAB-DYYB
     Dosage: 10 MG/KG INDUCTION WEEKS 0, 2, 6, THEN MAINTENANCE EVERY 8 WEEKS
     Route: 042
     Dates: start: 20240424

REACTIONS (2)
  - Colon injury [Unknown]
  - Drug ineffective [Unknown]
